FAERS Safety Report 23847110 (Version 1)
Quarter: 2024Q2

REPORT INFORMATION
  Report Type: Report from Study
  Country: US (occurrence: US)
  Receive Date: 20240513
  Receipt Date: 20240513
  Transmission Date: 20240716
  Serious: Yes (Hospitalization, Other)
  Sender: FDA-Public Use
  Company Number: US-ORPHANEU-2023001148

PATIENT

DRUGS (9)
  1. CARBAGLU [Suspect]
     Active Substance: CARGLUMIC ACID
     Indication: N-acetylglutamate synthase deficiency
     Dosage: 2.2 G/M2/D
     Route: 048
  2. CARBAGLU [Suspect]
     Active Substance: CARGLUMIC ACID
     Dosage: 1.8 G/M2/D
     Route: 048
  3. CARBAGLU [Suspect]
     Active Substance: CARGLUMIC ACID
     Dosage: 1.4 G/M2/D; DOSE DECREASED
     Route: 048
  4. CARBAGLU [Suspect]
     Active Substance: CARGLUMIC ACID
     Dosage: 1 G/M2/D
     Route: 048
  5. CARBAGLU [Suspect]
     Active Substance: CARGLUMIC ACID
     Dosage: 0.6 G/M2/D; DOSE DECREASED
     Route: 048
  6. CARBAGLU [Suspect]
     Active Substance: CARGLUMIC ACID
     Dosage: 0.4 G/M2/D; DOSE DECREASED
     Route: 048
  7. CARBAGLU [Suspect]
     Active Substance: CARGLUMIC ACID
     Dosage: 2.2 G/M2/D; DOSE INCREASED AFTER DELIVERY
     Route: 048
  8. CARBAGLU [Suspect]
     Active Substance: CARGLUMIC ACID
     Dosage: 1.6 G/M2/D; DOSE DECREASED
     Route: 048
  9. CARBAGLU [Suspect]
     Active Substance: CARGLUMIC ACID
     Dosage: 1.2 G/M2/D; DOSE DECREASED
     Route: 048

REACTIONS (5)
  - Gestational hypertension [Recovered/Resolved]
  - Gestational hypertension [Unknown]
  - Supraventricular tachycardia [Unknown]
  - Maternal exposure during pregnancy [Recovered/Resolved]
  - Maternal exposure during pregnancy [Recovered/Resolved]

NARRATIVE: CASE EVENT DATE: 20210101
